FAERS Safety Report 24041953 (Version 1)
Quarter: 2024Q3

REPORT INFORMATION
  Report Type: Spontaneous
  Country: GB (occurrence: GB)
  Receive Date: 20240702
  Receipt Date: 20240702
  Transmission Date: 20241016
  Serious: Yes (Other)
  Sender: SANOFI AVENTIS
  Company Number: GB-SA-SAC20240627000632

PATIENT
  Age: 27 Year
  Sex: Male

DRUGS (1)
  1. REZUROCK [Suspect]
     Active Substance: BELUMOSUDIL
     Indication: Chronic graft versus host disease
     Dosage: UNK
     Route: 065

REACTIONS (2)
  - Cataract [Unknown]
  - Visual impairment [Unknown]

NARRATIVE: CASE EVENT DATE: 20240101
